FAERS Safety Report 6872844-8 (Version None)
Quarter: 2010Q3

REPORT INFORMATION
  Report Type: 
  Country: None (occurrence: None)
  Receive Date: 20100723
  Receipt Date: 20081206
  Transmission Date: 20110219
  Serious: No
  Sender: FDA-Public Use
  Company Number: US-PFIZER INC-2008086332

PATIENT
  Sex: Female
  Weight: 58.97 kg

DRUGS (5)
  1. CHANTIX [Suspect]
     Indication: SMOKING CESSATION THERAPY
     Dosage: 1 MG, 2X/DAY
     Dates: start: 20080810
  2. TRICOR [Concomitant]
  3. TOPROL-XL [Concomitant]
  4. PROTONIX [Concomitant]
  5. LEVOXYL [Concomitant]

REACTIONS (3)
  - ALOPECIA [None]
  - MUSCULAR WEAKNESS [None]
  - MYALGIA [None]
